FAERS Safety Report 7402897-X (Version None)
Quarter: 2011Q1

REPORT INFORMATION
  Report Type: 
  Country: None (occurrence: None)
  Receive Date: 20110330
  Receipt Date: 20110317
  Transmission Date: 20110831
  Serious: Yes (Other)
  Sender: FDA-Public Use
  Company Number: EU-2011-10017

PATIENT
  Age: 63 Year
  Sex: Male

DRUGS (2)
  1. NACL (NACL) [Concomitant]
  2. SAMSCA [Suspect]
     Indication: HYPONATRAEMIA
     Dosage: 15 MG MILLIGRAM(S), DAILY DOSE, ORAL
     Route: 048

REACTIONS (4)
  - DYSTONIA [None]
  - DEMYELINATION [None]
  - CENTRAL PAIN SYNDROME [None]
  - PARAESTHESIA [None]
